FAERS Safety Report 17536222 (Version 1)
Quarter: 2020Q1

REPORT INFORMATION
  Report Type: Report from Study
  Country: IT (occurrence: IT)
  Receive Date: 20200313
  Receipt Date: 20200313
  Transmission Date: 20200409
  Serious: Yes (Other)
  Sender: FDA-Public Use
  Company Number: IT-TEVA-2020-IT-1198993

PATIENT
  Age: 67 Year
  Sex: Male
  Weight: 77 kg

DRUGS (2)
  1. GEMSOL [Suspect]
     Active Substance: GEMCITABINE HYDROCHLORIDE
     Indication: PLEURAL MESOTHELIOMA
     Dosage: 1500 MG
     Dates: start: 20200115
  2. CARBOPLATINO TEVA 10 MG/ML [Suspect]
     Active Substance: CARBOPLATIN
     Indication: PLEURAL MESOTHELIOMA
     Dosage: 250 MG
     Dates: start: 20200115

REACTIONS (4)
  - Malaise [Unknown]
  - Pyrexia [Unknown]
  - Hyperthermia [Unknown]
  - Asthenia [Unknown]

NARRATIVE: CASE EVENT DATE: 20200226
